FAERS Safety Report 5501386-7 (Version None)
Quarter: 2007Q4

REPORT INFORMATION
  Report Type: 
  Country: None (occurrence: None)
  Receive Date: 20071026
  Receipt Date: 20071010
  Transmission Date: 20080405
  Serious: Yes (Hospitalization)
  Sender: FDA-Public Use
  Company Number: 8027575

PATIENT
  Age: 35 Year
  Sex: Female
  Weight: 78 kg

DRUGS (2)
  1. KEPPRA [Suspect]
     Indication: EPILEPSY
     Dates: start: 20070216, end: 20071008
  2. UNSPECIFIED MEDICATIONS [Suspect]

REACTIONS (8)
  - ABDOMINAL PAIN UPPER [None]
  - BLOOD ALKALINE PHOSPHATASE ABNORMAL [None]
  - FATIGUE [None]
  - FLUID RETENTION [None]
  - HEPATIC ENZYME INCREASED [None]
  - LABORATORY TEST INTERFERENCE [None]
  - METABOLIC ACIDOSIS [None]
  - SOMNOLENCE [None]
